FAERS Safety Report 5134231-2 (Version None)
Quarter: 2006Q4

REPORT INFORMATION
  Report Type: 
  Country: None (occurrence: None)
  Receive Date: 20061019
  Receipt Date: 20061006
  Transmission Date: 20070319
  Serious: Yes (Death, Other)
  Sender: FDA-Public Use
  Company Number: 2006100079

PATIENT
  Sex: 0

DRUGS (3)
  1. DILANTIN [Suspect]
     Dosage: 30 MG
  2. DEMEROL [Suspect]
     Dosage: 50 MG
  3. WELLBUTRIN [Suspect]

REACTIONS (6)
  - CONVULSION [None]
  - DISORIENTATION [None]
  - DIZZINESS [None]
  - DRUG INEFFECTIVE [None]
  - DRUG TOXICITY [None]
  - MYOCARDIAL INFARCTION [None]
